FAERS Safety Report 10977795 (Version 1)
Quarter: 2015Q2

REPORT INFORMATION
  Report Type: Spontaneous
  Country: US (occurrence: None)
  Receive Date: 20150401
  Receipt Date: 20150401
  Transmission Date: 20150821
  Serious: Yes (Disabling, Other)
  Sender: FDA-Public Use
  Company Number: None

PATIENT
  Age: 71 Year
  Sex: Female
  Weight: 58.06 kg

DRUGS (7)
  1. PROFONONE [Concomitant]
  2. POTASSIUM [Concomitant]
     Active Substance: POTASSIUM
  3. TOPRAL [Concomitant]
     Active Substance: SULTOPRIDE HYDROCHLORIDE
  4. FUROSEMIDE. [Concomitant]
     Active Substance: FUROSEMIDE
  5. PROLIA [Suspect]
     Active Substance: DENOSUMAB
     Indication: BONE LOSS
     Dosage: 1 SHOT EVERY TO MTS.
     Dates: start: 20150302, end: 20150303
  6. D3 [Concomitant]
     Active Substance: 25-HYDROXYCHOLECALCIFEROL, 5-TRANS-
  7. NEXIUM [Concomitant]
     Active Substance: ESOMEPRAZOLE MAGNESIUM

REACTIONS (3)
  - Myalgia [None]
  - Bone pain [None]
  - Drug ineffective [None]

NARRATIVE: CASE EVENT DATE: 20150303
